FAERS Safety Report 9350791 (Version 1)
Quarter: 2013Q2

REPORT INFORMATION
  Report Type: Spontaneous
  Country: US (occurrence: US)
  Receive Date: 20130617
  Receipt Date: 20130617
  Transmission Date: 20140414
  Serious: No
  Sender: FDA-Public Use
  Company Number: US-JNJFOC-20130511187

PATIENT
  Age: 41 Year
  Sex: Female
  Weight: 59.88 kg

DRUGS (3)
  1. INVEGA [Suspect]
     Indication: BIPOLAR DISORDER
     Route: 048
     Dates: start: 201010
  2. VIIBRYD [Suspect]
     Indication: ANTIDEPRESSANT THERAPY
     Route: 048
  3. LAMICTAL [Suspect]
     Indication: DRUG THERAPY
     Route: 048

REACTIONS (2)
  - Depression [Not Recovered/Not Resolved]
  - Blood cholesterol increased [Not Recovered/Not Resolved]
